FAERS Safety Report 11888551 (Version 2)
Quarter: 2016Q4

REPORT INFORMATION
  Report Type: Spontaneous
  Country: US (occurrence: US)
  Receive Date: 20160105
  Receipt Date: 20161220
  Transmission Date: 20170206
  Serious: No
  Sender: FDA-Public Use
  Company Number: US-ROCHE-1003748

PATIENT
  Age: 65 Year
  Sex: Male
  Weight: 77.18 kg

DRUGS (1)
  1. ZELBORAF [Suspect]
     Active Substance: VEMURAFENIB
     Indication: METASTATIC MALIGNANT MELANOMA
     Route: 048

REACTIONS (24)
  - Pruritus [Unknown]
  - Hyperkeratosis [Recovered/Resolved]
  - Eye irritation [Unknown]
  - Peripheral swelling [Unknown]
  - Diarrhoea [Unknown]
  - Pain in extremity [Unknown]
  - Flushing [Unknown]
  - Sunburn [Unknown]
  - Erythema [Unknown]
  - Paraesthesia [Unknown]
  - Arthralgia [Unknown]
  - Musculoskeletal stiffness [Not Recovered/Not Resolved]
  - Erythema [Recovered/Resolved]
  - Photosensitivity reaction [Recovered/Resolved]
  - Joint stiffness [Unknown]
  - Skin exfoliation [Unknown]
  - Pain [Unknown]
  - Fatigue [Unknown]
  - Musculoskeletal pain [Not Recovered/Not Resolved]
  - Rash generalised [Recovered/Resolved]
  - Rash [Unknown]
  - Hypogeusia [Unknown]
  - Headache [Unknown]
  - Hypoaesthesia [Not Recovered/Not Resolved]

NARRATIVE: CASE EVENT DATE: 201109
